FAERS Safety Report 4628931-8 (Version None)
Quarter: 2005Q1

REPORT INFORMATION
  Report Type: 
  Country: None (occurrence: None)
  Receive Date: 20050107
  Receipt Date: 20041006
  Transmission Date: 20050727
  Serious: No
  Sender: FDA-Public Use
  Company Number: 233005K04USA

PATIENT
  Age: 30 Year
  Sex: Female

DRUGS (3)
  1. REBIF [Suspect]
     Indication: MULTIPLE SCLEROSIS
     Dosage: 22 MCG, 3 IN 1 WEEKS, SUBCUTANEOUS
     Route: 058
     Dates: start: 20040601, end: 20040705
  2. TYLENOL [Concomitant]
  3. COPAXONE [Concomitant]

REACTIONS (10)
  - ASTHENIA [None]
  - FATIGUE [None]
  - LARYNGITIS [None]
  - LYMPHADENOPATHY [None]
  - MUSCLE TIGHTNESS [None]
  - ORAL PRURITUS [None]
  - PARAESTHESIA [None]
  - SKIN BURNING SENSATION [None]
  - THROAT IRRITATION [None]
  - THROAT TIGHTNESS [None]
